FAERS Safety Report 7435825-1 (Version None)
Quarter: 2011Q2

REPORT INFORMATION
  Report Type: 
  Country: None (occurrence: None)
  Receive Date: 20110425
  Receipt Date: 20110414
  Transmission Date: 20111010
  Serious: Yes (Hospitalization)
  Sender: FDA-Public Use
  Company Number: US-ELI_LILLY_AND_COMPANY-US201102007043

PATIENT
  Age: 47 Year
  Sex: Male
  Weight: 83 kg

DRUGS (3)
  1. CYMBALTA [Suspect]
     Indication: DEPRESSION
     Dosage: 30 MG, DAILY (1/D)
  2. LORAZEPAM [Concomitant]
     Indication: PATIENT RESTRAINT
  3. OLANZAPINE [Concomitant]
     Indication: PATIENT RESTRAINT
     Dosage: 15 MG, DAILY (1/D)

REACTIONS (1)
  - ALCOHOL POISONING [None]
